FAERS Safety Report 18463060 (Version 1)
Quarter: 2020Q4

REPORT INFORMATION
  Report Type: Spontaneous
  Country: IT (occurrence: IT)
  Receive Date: 20201104
  Receipt Date: 20201104
  Transmission Date: 20210114
  Serious: Yes (Hospitalization)
  Sender: FDA-Public Use
  Company Number: IT-HORIZON-2020HZN00861

PATIENT
  Age: 14 Year
  Sex: Male
  Weight: 46 kg

DRUGS (2)
  1. IMUKIN (INTERFERON GAMMA-1B) [Suspect]
     Active Substance: INTERFERON GAMMA-1B
     Indication: FRIEDREICH^S ATAXIA
     Route: 058
     Dates: start: 20201007, end: 20201007
  2. IDEBENONE [Concomitant]
     Active Substance: IDEBENONE
     Indication: FRIEDREICH^S ATAXIA
     Dates: start: 20191201, end: 20201009

REACTIONS (2)
  - Cardiac arrest [Recovered/Resolved]
  - Off label use [Unknown]

NARRATIVE: CASE EVENT DATE: 20201009
